FAERS Safety Report 8440314-1 (Version None)
Quarter: 2012Q2

REPORT INFORMATION
  Report Type: 
  Country: None (occurrence: None)
  Receive Date: 20120615
  Receipt Date: 20120612
  Transmission Date: 20120825
  Serious: Yes (Other)
  Sender: FDA-Public Use
  Company Number: AR-ROCHE-1078698

PATIENT
  Sex: Female

DRUGS (3)
  1. LUCENTIS [Suspect]
     Route: 050
     Dates: start: 20120301
  2. LUCENTIS [Suspect]
     Indication: MACULOPATHY
     Route: 050
     Dates: start: 20111001
  3. LUCENTIS [Suspect]
     Route: 050
     Dates: start: 20111201

REACTIONS (2)
  - MACULOPATHY [None]
  - DISEASE PROGRESSION [None]
